FAERS Safety Report 15400789 (Version 1)
Quarter: 2018Q3

REPORT INFORMATION
  Report Type: Spontaneous
  Country: US (occurrence: US)
  Receive Date: 20180913
  Receipt Date: 20180913
  Transmission Date: 20181010
  Serious: No
  Sender: FDA-Public Use
  Company Number: None

PATIENT
  Age: 36 Year
  Sex: Male

DRUGS (2)
  1. TALTZ [Suspect]
     Active Substance: IXEKIZUMAB
     Indication: PSORIATIC ARTHROPATHY
     Dosage: AT WEEKS 2 ? 12
     Route: 058
     Dates: start: 201807
  2. TALTZ [Suspect]
     Active Substance: IXEKIZUMAB
     Indication: PSORIASIS
     Dosage: AT WEEKS 2 ? 12
     Route: 058
     Dates: start: 201807

REACTIONS (2)
  - Lower respiratory tract infection [None]
  - Respiratory tract infection [None]
